FAERS Safety Report 9093771 (Version 1)
Quarter: 2013Q1

REPORT INFORMATION
  Report Type: Report from Study
  Country: US (occurrence: US)
  Receive Date: 20130131
  Receipt Date: 20130131
  Transmission Date: 20140127
  Serious: No
  Sender: FDA-Public Use
  Company Number: US-ABBOTT-12P-163-1013984-00

PATIENT
  Age: 55 Year
  Sex: Female

DRUGS (4)
  1. HUMIRA [Suspect]
     Indication: CROHN^S DISEASE
     Dosage: LOADING DOSE
     Dates: start: 20121003, end: 20121003
  2. HUMIRA [Suspect]
     Dosage: LOADING DOSE
     Dates: start: 20121018, end: 20121018
  3. HUMIRA [Suspect]
     Dates: start: 20121003
  4. TYLENOL [Concomitant]
     Indication: PRODUCT USED FOR UNKNOWN INDICATION

REACTIONS (3)
  - Injection site pain [Recovering/Resolving]
  - Upper respiratory tract infection [Unknown]
  - Injection site bruising [Recovering/Resolving]
